FAERS Safety Report 7779414-8 (Version None)
Quarter: 2011Q3

REPORT INFORMATION
  Report Type: 
  Country: None (occurrence: None)
  Receive Date: 20110927
  Receipt Date: 20110916
  Transmission Date: 20111222
  Serious: No
  Sender: FDA-Public Use
  Company Number: US-BIOGENIDEC-2010BI042928

PATIENT
  Sex: Female

DRUGS (1)
  1. TYSABRI [Suspect]
     Indication: MULTIPLE SCLEROSIS
     Route: 042
     Dates: start: 20080811, end: 20110916

REACTIONS (19)
  - CARTILAGE INJURY [None]
  - MONOPLEGIA [None]
  - GAIT DISTURBANCE [None]
  - JOINT INJURY [None]
  - JOINT EFFUSION [None]
  - ARTHRALGIA [None]
  - TREMOR [None]
  - GENERAL SYMPTOM [None]
  - ATROPHY [None]
  - MULTIPLE SCLEROSIS RELAPSE [None]
  - MOOD SWINGS [None]
  - LIGAMENT SPRAIN [None]
  - BURSA DISORDER [None]
  - MUSCULOSKELETAL DISORDER [None]
  - JOINT SWELLING [None]
  - FALL [None]
  - BURSA INJURY [None]
  - CENTRAL NERVOUS SYSTEM LESION [None]
  - RASH ERYTHEMATOUS [None]
